FAERS Safety Report 5787454-3 (Version None)
Quarter: 2008Q2

REPORT INFORMATION
  Report Type: 
  Country: None (occurrence: None)
  Receive Date: 20080620
  Receipt Date: 20080611
  Transmission Date: 20081010
  Serious: Yes (Death)
  Sender: FDA-Public Use
  Company Number: 08H-163-0314417-00

PATIENT
  Age: 64 Year
  Sex: Male

DRUGS (7)
  1. PROPOFOL [Suspect]
     Indication: STATUS EPILEPTICUS
     Dosage: 1 MG/KG, ONCE, INTRAVENOUS BOLUS;  120-140 UG/KG/MIN, INFUSION
     Route: 040
  2. LORAZEPAM [Concomitant]
  3. PHENYTOIN [Concomitant]
  4. ZONISAMIDE [Concomitant]
  5. FOSPHENYTOIN (FOSPHENYTOIN) [Concomitant]
  6. INTRAVENOUS FLUIDS (PARENTERAL) [Concomitant]
  7. NOREPINEPHRINE BITARTRATE [Concomitant]

REACTIONS (6)
  - ANOXIC ENCEPHALOPATHY [None]
  - DYSLIPIDAEMIA [None]
  - PROPOFOL INFUSION SYNDROME [None]
  - RENAL FAILURE ACUTE [None]
  - RHABDOMYOLYSIS [None]
  - SHOCK [None]
